FAERS Safety Report 10240964 (Version 3)
Quarter: 2014Q2

REPORT INFORMATION
  Report Type: Spontaneous
  Country: AW (occurrence: AW)
  Receive Date: 20140617
  Receipt Date: 20140626
  Transmission Date: 20141212
  Serious: Yes (Other)
  Sender: FDA-Public Use
  Company Number: AW-JNJFOC-20140508802

PATIENT
  Age: 31 Year
  Sex: Female
  Weight: 72 kg

DRUGS (8)
  1. REMICADE [Suspect]
     Indication: COLITIS ULCERATIVE
     Dosage: THE PATIENT HAD USED INFLIXIMAB 4.5 YEARS PRIOR TO THIS REPORT.
     Route: 042
     Dates: start: 20140207
  2. REMICADE [Suspect]
     Indication: COLITIS ULCERATIVE
     Route: 042
     Dates: end: 20140609
  3. CITALOPRAM [Concomitant]
     Indication: DEPRESSION
     Route: 065
     Dates: start: 201402
  4. HALDOL [Concomitant]
     Indication: DEPRESSION
     Route: 065
     Dates: start: 201402
  5. MICROGYNON [Concomitant]
     Indication: CONTRACEPTION
     Dosage: SINCE 10 YEARS
     Route: 065
  6. SOLUCORTEF [Concomitant]
     Indication: PREMEDICATION
     Route: 042
  7. PARACETAMOL [Concomitant]
     Indication: PREMEDICATION
     Dosage: DOSE: 1 GR
     Route: 042
  8. TAVEGYL [Concomitant]
     Indication: PREMEDICATION
     Dosage: 1 AMPULLA
     Route: 042

REACTIONS (14)
  - Convulsion [Unknown]
  - Depression [Unknown]
  - Colitis ulcerative [Unknown]
  - Infusion related reaction [Unknown]
  - Rash [Unknown]
  - Dizziness [Not Recovered/Not Resolved]
  - Decreased appetite [Not Recovered/Not Resolved]
  - Palpitations [Recovered/Resolved]
  - Headache [Recovered/Resolved]
  - Arthralgia [Recovered/Resolved]
  - Dyspnoea [Recovered/Resolved]
  - Oropharyngeal pain [Recovered/Resolved]
  - Myalgia [Recovered/Resolved]
  - Pruritus [Recovering/Resolving]
